FAERS Safety Report 5007329-7 (Version None)
Quarter: 2006Q2

REPORT INFORMATION
  Report Type: 
  Country: None (occurrence: None)
  Receive Date: 20060518
  Receipt Date: 20060518
  Transmission Date: 20061013
  Serious: No
  Sender: FDA-Public Use
  Company Number: None

PATIENT
  Age: 28 Year
  Sex: Female

DRUGS (1)
  1. PREDNISOLONE ACETATE [Suspect]
     Indication: IRITIS
     Dosage: 1 DROP O.S. HOURLY TOPICAL
     Route: 061
     Dates: start: 20060512, end: 20060517

REACTIONS (1)
  - NO THERAPEUTIC RESPONSE [None]
